FAERS Safety Report 4567808-3 (Version None)
Quarter: 2005Q1

REPORT INFORMATION
  Report Type: 
  Country: None (occurrence: None)
  Receive Date: 20050202
  Receipt Date: 20041129
  Transmission Date: 20050727
  Serious: Yes (Other)
  Sender: FDA-Public Use
  Company Number: PHNU2004DE04028

PATIENT
  Age: 71 Year
  Sex: Female
  Weight: 72 kg

DRUGS (4)
  1. L-THYROXIN [Concomitant]
     Indication: GOITRE
     Dosage: 100 MG, QD
     Route: 048
     Dates: start: 19940701
  2. PENICILLIN V [Concomitant]
     Indication: ERYSIPELAS
     Dosage: 1.5 MG, BID
     Route: 048
     Dates: start: 20040611, end: 20040616
  3. TETRACYCLINE [Concomitant]
     Indication: BORRELIA INFECTION
     Dosage: 250 MG, BID
     Route: 048
     Dates: start: 20040708, end: 20040724
  4. LOCOL [Suspect]
     Indication: HYPERLIPIDAEMIA
     Dosage: 80 MG, QD
     Route: 048
     Dates: start: 20040601, end: 20041108

REACTIONS (1)
  - MACULAR DEGENERATION [None]
